FAERS Safety Report 10837906 (Version 1)
Quarter: 2015Q1

REPORT INFORMATION
  Report Type: Report from Study
  Country: US (occurrence: US)
  Receive Date: 20150219
  Receipt Date: 20150219
  Transmission Date: 20150721
  Serious: No
  Sender: FDA-Public Use
  Company Number: US-ABBVIE-14P-163-1231773-00

PATIENT
  Age: 52 Year
  Sex: Male

DRUGS (1)
  1. HUMIRA [Suspect]
     Active Substance: ADALIMUMAB
     Indication: GUTTATE PSORIASIS
     Dosage: MONDAY
     Route: 058
     Dates: start: 20140310

REACTIONS (2)
  - Psoriasis [Not Recovered/Not Resolved]
  - Guttate psoriasis [Not Recovered/Not Resolved]

NARRATIVE: CASE EVENT DATE: 20140417
